FAERS Safety Report 5837863-9 (Version None)
Quarter: 2008Q3

REPORT INFORMATION
  Report Type: 
  Country: None (occurrence: None)
  Receive Date: 20080808
  Receipt Date: 20080228
  Transmission Date: 20090109
  Serious: No
  Sender: FDA-Public Use
  Company Number: A0714373A

PATIENT
  Sex: Female

DRUGS (1)
  1. PAXIL CR [Suspect]
     Indication: DRUG USE FOR UNKNOWN INDICATION
     Route: 065

REACTIONS (1)
  - STOMACH DISCOMFORT [None]
